FAERS Safety Report 5128957-4 (Version None)
Quarter: 2006Q4

REPORT INFORMATION
  Report Type: 
  Country: None (occurrence: None)
  Receive Date: 20061016
  Receipt Date: 20061016
  Transmission Date: 20070319
  Serious: Yes (Hospitalization)
  Sender: FDA-Public Use
  Company Number: None

PATIENT
  Age: 52 Year
  Sex: Male

DRUGS (2)
  1. VELCADE [Suspect]
     Indication: MANTLE CELL LYMPHOMA
     Dosage: 1.3MG/M2 IV  DAY 1 AND 4 OF 21 DAY
     Route: 042
  2. R-CHOP [Suspect]
     Indication: MANTLE CELL LYMPHOMA
     Dosage: DAY 1 OF 21 DAY CYCLE

REACTIONS (1)
  - PANCYTOPENIA [None]
